FAERS Safety Report 10281068 (Version 1)
Quarter: 2014Q3

REPORT INFORMATION
  Report Type: Spontaneous
  Country: PL (occurrence: PL)
  Receive Date: 20140707
  Receipt Date: 20140707
  Transmission Date: 20150326
  Serious: Yes (Hospitalization)
  Sender: FDA-Public Use
  Company Number: PL-BRISTOL-MYERS SQUIBB COMPANY-21174248

PATIENT
  Age: 58 Year
  Sex: Male

DRUGS (9)
  1. VALSARTAN + AMLODIPINE [Suspect]
     Active Substance: AMLODIPINE\VALSARTAN
     Dosage: 1DF: 10/160MG
  2. NOVOMIX [Suspect]
     Active Substance: INSULIN ASPART
     Dosage: 1DF: 30 30-0-20J
  3. INDAPAMIDE. [Suspect]
     Active Substance: INDAPAMIDE
  4. DOXAZOSIN [Suspect]
     Active Substance: DOXAZOSIN\DOXAZOSIN MESYLATE
  5. BETALOXOL [Suspect]
     Active Substance: BETAXOLOL
  6. SIMVASTATIN. [Suspect]
     Active Substance: SIMVASTATIN
  7. EPLERENONE. [Suspect]
     Active Substance: EPLERENONE
  8. METFORMIN HCL [Suspect]
     Active Substance: METFORMIN HYDROCHLORIDE
     Dosage: DOSE REDUCEED TO 2X500MG
  9. DABIGATRAN ETEXILATE [Suspect]
     Active Substance: DABIGATRAN ETEXILATE

REACTIONS (3)
  - Hypertension [Unknown]
  - Chest pain [Unknown]
  - Weight increased [Unknown]
